FAERS Safety Report 24722295 (Version 1)
Quarter: 2024Q4

REPORT INFORMATION
  Report Type: Spontaneous
  Country: US (occurrence: None)
  Receive Date: 20241210
  Receipt Date: 20241210
  Transmission Date: 20250115
  Serious: Yes (Hospitalization)
  Sender: Public
  Company Number: None

PATIENT
  Age: 58 Year
  Sex: Male
  Weight: 85 kg

DRUGS (2)
  1. FENTANYL CITRATE [Suspect]
     Active Substance: FENTANYL CITRATE
     Indication: Endoscopy gastrointestinal
     Route: 042
     Dates: start: 20220823, end: 20220823
  2. MIDAZOLAM HYDROCHLORIDE [Suspect]
     Active Substance: MIDAZOLAM HYDROCHLORIDE
     Dates: start: 20220823, end: 20220823

REACTIONS (8)
  - Mental status changes [None]
  - Dysphagia [None]
  - Hypertension [None]
  - Respiratory depression [None]
  - Tachycardia [None]
  - Oxygen saturation decreased [None]
  - Seizure [None]
  - Sedation [None]

NARRATIVE: CASE EVENT DATE: 20220823
